FAERS Safety Report 16679151 (Version 2)
Quarter: 2019Q4

REPORT INFORMATION
  Report Type: Report from Study
  Country: None (occurrence: HN)
  Receive Date: 20190807
  Receipt Date: 20191007
  Transmission Date: 20200122
  Serious: Yes (Other)
  Sender: FDA-Public Use
  Company Number: HN-ABBVIE-19K-074-2877926-00

PATIENT
  Age: 50 Year
  Sex: Female
  Weight: 75 kg

DRUGS (1)
  1. HUMIRA [Suspect]
     Active Substance: ADALIMUMAB
     Indication: RHEUMATOID ARTHRITIS
     Route: 058
     Dates: start: 20190315

REACTIONS (7)
  - Hyperthyroidism [Not Recovered/Not Resolved]
  - Oedema peripheral [Unknown]
  - Joint effusion [Not Recovered/Not Resolved]
  - Mobility decreased [Unknown]
  - Anaemia [Not Recovered/Not Resolved]
  - Drug ineffective [Unknown]
  - Pain [Not Recovered/Not Resolved]

NARRATIVE: CASE EVENT DATE: 2019
